FAERS Safety Report 4930063-6 (Version None)
Quarter: 2006Q1

REPORT INFORMATION
  Report Type: 
  Country: None (occurrence: None)
  Receive Date: 20060228
  Receipt Date: 20060213
  Transmission Date: 20060701
  Serious: Yes (Life-Threatening)
  Sender: FDA-Public Use
  Company Number: 133355

PATIENT
  Age: 66 Year
  Sex: Female

DRUGS (1)
  1. TIMOLOL MALEATE [Suspect]
     Dosage: 1 DROP DAILY TOPICAL OPHTHALMIC
     Route: 047

REACTIONS (10)
  - ATRIOVENTRICULAR BLOCK COMPLETE [None]
  - ATRIOVENTRICULAR BLOCK SECOND DEGREE [None]
  - BUNDLE BRANCH BLOCK LEFT [None]
  - CARDIAC ARREST [None]
  - FALL [None]
  - INTRAOCULAR PRESSURE INCREASED [None]
  - LOSS OF CONSCIOUSNESS [None]
  - PROCEDURAL COMPLICATION [None]
  - THROMBOPHLEBITIS [None]
  - VERTIGO [None]
